FAERS Safety Report 16141403 (Version 1)
Quarter: 2019Q2

REPORT INFORMATION
  Report Type: Spontaneous
  Country: US (occurrence: US)
  Receive Date: 20190401
  Receipt Date: 20190401
  Transmission Date: 20190711
  Serious: No
  Sender: FDA-Public Use
  Company Number: US-PFIZER INC-2019138768

PATIENT
  Age: 67 Year
  Sex: Male
  Weight: 77.98 kg

DRUGS (1)
  1. CAMPTOSAR [Suspect]
     Active Substance: IRINOTECAN HYDROCHLORIDE
     Indication: COLON CANCER METASTATIC
     Dosage: UNK
     Dates: start: 2017

REACTIONS (2)
  - Alopecia [Unknown]
  - Blood count abnormal [Not Recovered/Not Resolved]
